FAERS Safety Report 9167500 (Version 1)
Quarter: 2013Q1

REPORT INFORMATION
  Report Type: Spontaneous
  Country: IT (occurrence: None)
  Receive Date: 20130305
  Receipt Date: 20130305
  Transmission Date: 20140127
  Serious: Yes (Life-Threatening)
  Sender: FDA-Public Use
  Company Number: GER/ITL/13/0028329

PATIENT
  Age: 64 Year
  Sex: Male

DRUGS (1)
  1. CLOPIDOGREL (CLOPIDOGREL) [Suspect]
     Indication: PRODUCT USED FOR UNKNOWN INDICATION

REACTIONS (3)
  - Cerebral infarction [None]
  - Cerebral thrombosis [None]
  - Subarachnoid haemorrhage [None]
